FAERS Safety Report 8268990-7 (Version None)
Quarter: 2012Q2

REPORT INFORMATION
  Report Type: 
  Country: None (occurrence: None)
  Receive Date: 20120409
  Receipt Date: 20120402
  Transmission Date: 20120825
  Serious: Yes (Hospitalization)
  Sender: FDA-Public Use
  Company Number: GB-JNJFOC-20120209910

PATIENT
  Sex: Male

DRUGS (4)
  1. IBUPROFEN [Suspect]
     Indication: PYREXIA
     Route: 065
  2. ACETAMINOPHEN [Suspect]
     Route: 065
  3. ACETAMINOPHEN [Suspect]
     Indication: PYREXIA
     Route: 065
  4. ANTIBIOTICS NOS [Suspect]
     Indication: RESPIRATORY TRACT INFECTION
     Route: 042

REACTIONS (1)
  - STEVENS-JOHNSON SYNDROME [None]
